FAERS Safety Report 21781822 (Version 1)
Quarter: 2022Q4

REPORT INFORMATION
  Report Type: Spontaneous
  Country: GB (occurrence: GB)
  Receive Date: 20221227
  Receipt Date: 20221227
  Transmission Date: 20230112
  Serious: Yes (Other)
  Sender: FDA-Public Use
  Company Number: GB-SUN PHARMACEUTICAL INDUSTRIES LTD-2022R1-369850

PATIENT
  Age: 30 Year
  Sex: Male

DRUGS (3)
  1. LITHIUM [Suspect]
     Active Substance: LITHIUM
     Indication: Attention deficit hyperactivity disorder
     Dosage: 400 MILLIGRAM, DAILY
     Route: 065
  2. SUMATRIPTAN [Suspect]
     Active Substance: SUMATRIPTAN
     Indication: Acute coronary syndrome
     Dosage: 6 MG VIA PREFILLED INJECTION DEVICE
     Route: 058
  3. VERAPAMIL [Suspect]
     Active Substance: VERAPAMIL HYDROCHLORIDE
     Indication: Prophylaxis
     Dosage: 320 MILLIGRAM, BID
     Route: 065

REACTIONS (2)
  - Autism spectrum disorder [Unknown]
  - Gingival hypertrophy [Unknown]
